FAERS Safety Report 18839102 (Version 2)
Quarter: 2022Q1

REPORT INFORMATION
  Report Type: Spontaneous
  Country: US (occurrence: US)
  Receive Date: 20210203
  Receipt Date: 20220127
  Transmission Date: 20220423
  Serious: No
  Sender: FDA-Public Use
  Company Number: US-ALLERGAN-2049834US

PATIENT
  Age: 80 Year
  Sex: Female

DRUGS (2)
  1. BOTOX [Suspect]
     Active Substance: ONABOTULINUMTOXINA
     Indication: Hypertonic bladder
     Dosage: 100 UNITS, SINGLE
     Dates: start: 202012, end: 202012
  2. ARMOUR THYROID [Concomitant]
     Active Substance: THYROID, PORCINE

REACTIONS (5)
  - Bladder spasm [Not Recovered/Not Resolved]
  - Pollakiuria [Not Recovered/Not Resolved]
  - Limb discomfort [Not Recovered/Not Resolved]
  - Muscle spasms [Not Recovered/Not Resolved]
  - Injection site pain [Unknown]

NARRATIVE: CASE EVENT DATE: 20201201
